FAERS Safety Report 10203091 (Version 1)
Quarter: 2014Q2

REPORT INFORMATION
  Report Type: Spontaneous
  Country: FI (occurrence: FI)
  Receive Date: 20140529
  Receipt Date: 20140529
  Transmission Date: 20141212
  Serious: Yes (Other)
  Sender: FDA-Public Use
  Company Number: FI-AMGEN-FINSP2014038665

PATIENT
  Age: 64 Year
  Sex: Female

DRUGS (12)
  1. XGEVA [Suspect]
     Indication: METASTASES TO BONE
     Dosage: UNK
     Route: 065
     Dates: start: 201204
  2. DIFORMIN [Concomitant]
  3. LANSOPRAZOL [Concomitant]
  4. PRIMPERAN [Concomitant]
  5. PEGORION [Concomitant]
  6. KALEORID [Concomitant]
  7. FURESIS [Concomitant]
  8. OXYCONTIN [Concomitant]
  9. OXYNORM [Concomitant]
  10. PANADOL                            /00020001/ [Concomitant]
  11. OPAMOX [Concomitant]
  12. IMOVANE [Concomitant]

REACTIONS (4)
  - Renal failure [Unknown]
  - Nephrectomy [Unknown]
  - Constipation [Unknown]
  - Hypercalcaemia [Unknown]
